FAERS Safety Report 16754620 (Version 1)
Quarter: 2019Q3

REPORT INFORMATION
  Report Type: Spontaneous
  Country: US (occurrence: US)
  Receive Date: 20190829
  Receipt Date: 20190829
  Transmission Date: 20191005
  Serious: Yes (Other)
  Sender: FDA-Public Use
  Company Number: US-AMGEN-USASP2019136139

PATIENT
  Age: 72 Year
  Sex: Male
  Weight: 117.01 kg

DRUGS (1)
  1. REPATHA [Suspect]
     Active Substance: EVOLOCUMAB
     Indication: BLOOD CHOLESTEROL INCREASED
     Dosage: 140 MILLIGRAM, Q2WK
     Route: 065
     Dates: start: 2018, end: 20190801

REACTIONS (12)
  - Amnesia [Unknown]
  - Glycosylated haemoglobin increased [Unknown]
  - Rhinorrhoea [Unknown]
  - Vision blurred [Recovering/Resolving]
  - Blood potassium decreased [Recovered/Resolved]
  - Headache [Recovered/Resolved]
  - Cardiac failure congestive [Unknown]
  - Pneumonia [Recovered/Resolved]
  - Loss of consciousness [Unknown]
  - Vertigo [Recovering/Resolving]
  - Blood glucose increased [Recovering/Resolving]
  - Hypothyroidism [Unknown]

NARRATIVE: CASE EVENT DATE: 2019
